FAERS Safety Report 9429523 (Version 1)
Quarter: 2013Q3

REPORT INFORMATION
  Report Type: Report from Study
  Country: US (occurrence: US)
  Receive Date: 20130730
  Receipt Date: 20130730
  Transmission Date: 20140515
  Serious: No
  Sender: FDA-Public Use
  Company Number: US-ABBOTT-13P-163-1062065-00

PATIENT
  Age: 34 Year
  Sex: Female
  Weight: 104.42 kg

DRUGS (4)
  1. NIASPAN (COATED) [Suspect]
     Indication: BLOOD CHOLESTEROL INCREASED
     Dosage: TOOK 1 TAB FOR 5 DAYS, THEN DAY 6 STARTED TAKING 2 TABS
     Dates: start: 201212
  2. GABAPENTIN [Concomitant]
     Indication: PRODUCT USED FOR UNKNOWN INDICATION
  3. SOMA [Concomitant]
     Indication: PRODUCT USED FOR UNKNOWN INDICATION
  4. OXYCODONE [Concomitant]
     Indication: PRODUCT USED FOR UNKNOWN INDICATION
     Dosage: TWICE A DAY, AS NEEDED

REACTIONS (3)
  - Acne [Not Recovered/Not Resolved]
  - Erythema [Unknown]
  - Hyperaesthesia [Not Recovered/Not Resolved]
